FAERS Safety Report 19254521 (Version 1)
Quarter: 2021Q2

REPORT INFORMATION
  Report Type: Spontaneous
  Country: GB (occurrence: GB)
  Receive Date: 20210513
  Receipt Date: 20210513
  Transmission Date: 20210717
  Serious: Yes (Other)
  Sender: FDA-Public Use
  Company Number: GB-TORRENT-00025652

PATIENT
  Age: 47 Year
  Sex: Female
  Weight: 85 kg

DRUGS (4)
  1. FELODIPIN [Concomitant]
     Active Substance: FELODIPINE
     Indication: PRODUCT USED FOR UNKNOWN INDICATION
     Dosage: UNKNOWN
  2. CITALOPRAM [Concomitant]
     Active Substance: CITALOPRAM HYDROBROMIDE
     Indication: PRODUCT USED FOR UNKNOWN INDICATION
  3. OLANZAPINE. [Suspect]
     Active Substance: OLANZAPINE
     Indication: PARANOIA
     Dosage: 5 MG FOR 3 MONTHS THEN 2.5MG FOR 3 MONTHS
     Route: 048
     Dates: start: 20200717, end: 20210127
  4. RAMIPRIL. [Concomitant]
     Active Substance: RAMIPRIL
     Indication: PRODUCT USED FOR UNKNOWN INDICATION
     Dosage: UNKNOWN

REACTIONS (2)
  - Cataract [Not Recovered/Not Resolved]
  - Glare [Unknown]

NARRATIVE: CASE EVENT DATE: 20210330
